FAERS Safety Report 7402373-4 (Version None)
Quarter: 2011Q2

REPORT INFORMATION
  Report Type: 
  Country: None (occurrence: None)
  Receive Date: 20110408
  Receipt Date: 20110330
  Transmission Date: 20111010
  Serious: Yes (Hospitalization)
  Sender: FDA-Public Use
  Company Number: US-BRISTOL-MYERS SQUIBB COMPANY-15647340

PATIENT
  Age: 64 Year
  Sex: Male
  Weight: 63 kg

DRUGS (11)
  1. HYDROCHLOROTHIAZIDE [Concomitant]
  2. VITAMIN B COMPLEX CAP [Concomitant]
     Route: 065
  3. PRILOSEC [Concomitant]
     Dosage: ONCE EVERY MORNING
     Route: 065
     Dates: start: 20030101
  4. PRAVASTATIN SODIUM [Concomitant]
     Dosage: AT BED TIME
     Route: 065
     Dates: start: 19950101
  5. METOPROLOL [Concomitant]
     Dosage: EVERY MORNING
     Route: 065
     Dates: start: 19950101
  6. CETUXIMAB [Suspect]
     Indication: HEAD AND NECK CANCER
     Route: 042
     Dates: start: 20110317, end: 20110317
  7. DIOVAN HCT [Concomitant]
     Dosage: 1DF=320/25 UNIT NOT SPECIFIED.ONCE EVERY MORNING
     Route: 065
     Dates: start: 19950101
  8. ASPIRIN [Concomitant]
     Route: 065
  9. FLUOROURACIL [Suspect]
     Indication: HEAD AND NECK CANCER
     Route: 042
     Dates: start: 20110317, end: 20110321
  10. CISPLATIN [Suspect]
     Indication: HEAD AND NECK CANCER
     Route: 042
     Dates: start: 20110317, end: 20110317
  11. NORVASC [Concomitant]
     Route: 065
     Dates: start: 19950101

REACTIONS (2)
  - RENAL FAILURE ACUTE [None]
  - TUMOUR LYSIS SYNDROME [None]
